FAERS Safety Report 4716448-1 (Version None)
Quarter: 2005Q3

REPORT INFORMATION
  Report Type: 
  Country: None (occurrence: None)
  Receive Date: 20050719
  Receipt Date: 20050519
  Transmission Date: 20060218
  Serious: No
  Sender: FDA-Public Use
  Company Number: JP-SOLVAY-00305001783

PATIENT
  Age: 423 Month
  Sex: Male
  Weight: 60 kg

DRUGS (12)
  1. LIMAS [Concomitant]
     Indication: DEPRESSION
     Dosage: DAILY DOSE: 800 MILLIGRAM(S)
     Route: 048
     Dates: start: 20040527
  2. DEPROMEL 25 [Suspect]
     Indication: DEPRESSION
     Dosage: DAILY DOSE: 150 MILLIGRAM(S)
     Route: 048
     Dates: start: 20040602
  3. RESLIN [Concomitant]
     Indication: DEPRESSION
     Dosage: DAILY DOSE: 50 MILLIGRAM(S)
     Route: 048
     Dates: start: 20040121
  4. MYSLEE [Concomitant]
     Indication: INSOMNIA
     Dosage: DAILY DOSE: 5 MILLIGRAM(S)
     Route: 048
     Dates: start: 20040203
  5. ROHYPNOL [Concomitant]
     Indication: INSOMNIA
     Dosage: DAILY DOSE: 2 MILLIGRAM(S)
     Route: 048
     Dates: start: 20040217
  6. BENZALIN [Concomitant]
     Indication: INSOMNIA
     Dosage: DAILY DOSE: 5 MILLIGRAM(S)
     Route: 048
     Dates: start: 20040406
  7. LORAZEPAM [Concomitant]
     Indication: ANXIETY
     Dosage: DAILY DOSE: AS NEEDED
     Route: 048
  8. MIRADOL [Concomitant]
     Indication: DEPRESSION
     Dosage: DAILY DOSE: 300 MILLIGRAM(S)
     Route: 048
     Dates: start: 20040121
  9. ALOSENN [Concomitant]
     Indication: CONSTIPATION
     Dosage: DAILY DOSE: .5 GRAM(S)
     Route: 048
     Dates: start: 20040309
  10. VEGETAMIN-B [Concomitant]
     Indication: INSOMNIA
     Dosage: DAILY DOSE: 1 DOSAGE FORM
     Route: 048
     Dates: start: 20040121
  11. AMOBAN [Concomitant]
     Indication: ANXIETY
     Dosage: DAILY DOSE:  UNKNOWN
     Route: 048
  12. TEGRETOL [Concomitant]
     Indication: ANXIETY
     Dosage: DAILY DOSE:  UNKNOWN
     Route: 048

REACTIONS (4)
  - IMPAIRED HEALING [None]
  - OEDEMA PERIPHERAL [None]
  - PARAESTHESIA ORAL [None]
  - WOUND [None]
